FAERS Safety Report 14479033 (Version 1)
Quarter: 2018Q1

REPORT INFORMATION
  Report Type: Spontaneous
  Country: FR (occurrence: FR)
  Receive Date: 20180202
  Receipt Date: 20180202
  Transmission Date: 20180509
  Serious: Yes (Other)
  Sender: FDA-Public Use
  Company Number: FR-MERCK KGAA-2041260

PATIENT
  Sex: Female

DRUGS (2)
  1. NOVOTHYROX [Suspect]
     Active Substance: LEVOTHYROXINE SODIUM
     Indication: HYPOTHYROIDISM
     Dates: start: 201709
  2. LEVOTHYROX 175 NF [Suspect]
     Active Substance: LEVOTHYROXINE
     Dates: start: 201709

REACTIONS (4)
  - Pain [None]
  - Hyperthyroidism [Not Recovered/Not Resolved]
  - Insomnia [None]
  - Torticollis [None]

NARRATIVE: CASE EVENT DATE: 2017
